FAERS Safety Report 15425019 (Version 1)
Quarter: 2018Q3

REPORT INFORMATION
  Report Type: Spontaneous
  Country: US (occurrence: US)
  Receive Date: 20180917
  Receipt Date: 20180917
  Transmission Date: 20181010
  Serious: No
  Sender: FDA-Public Use
  Company Number: None

PATIENT
  Age: 8 Month
  Sex: Female

DRUGS (1)
  1. KALYDECO [Suspect]
     Active Substance: IVACAFTOR
     Dates: start: 20180912

REACTIONS (3)
  - Secretion discharge [None]
  - Pyrexia [None]
  - Condition aggravated [None]

NARRATIVE: CASE EVENT DATE: 20170917
